FAERS Safety Report 8834531 (Version 1)
Quarter: 2012Q4

REPORT INFORMATION
  Report Type: 
  Country: US (occurrence: US)
  Receive Date: 20121010
  Receipt Date: 20121010
  Transmission Date: 20130627
  Serious: Yes (Hospitalization, Other)
  Sender: FDA-Public Use
  Company Number: US-PFIZER INC-2012248888

PATIENT
  Age: 18 Year
  Sex: Female

DRUGS (3)
  1. CELONTIN [Suspect]
     Indication: PARTIAL SEIZURES
     Dosage: 10 g, single
  2. DIPHENYLHYDANTOIN [Concomitant]
     Indication: PARTIAL SEIZURES
  3. PHENOBARBITAL [Concomitant]
     Indication: PARTIAL SEIZURES

REACTIONS (8)
  - Intentional overdose [Recovering/Resolving]
  - Suicide attempt [Recovering/Resolving]
  - Coma [Recovering/Resolving]
  - Clonus [Recovering/Resolving]
  - Hyperreflexia [Recovering/Resolving]
  - Dizziness [Recovering/Resolving]
  - Balance disorder [Recovering/Resolving]
  - Cyanosis [None]
